FAERS Safety Report 5313017-X (Version None)
Quarter: 2007Q2

REPORT INFORMATION
  Report Type: 
  Country: None (occurrence: None)
  Receive Date: 20070424
  Receipt Date: 20070417
  Transmission Date: 20071010
  Serious: Yes (Other)
  Sender: FDA-Public Use
  Company Number: C210

PATIENT
  Age: 58 Year
  Sex: Female
  Weight: 55.3388 kg

DRUGS (3)
  1. BREATHTEK UBT FOR H-PYLORI [Suspect]
     Indication: HELICOBACTER INFECTION
     Dosage: ONE POUCH PER TEST (3G)
     Dates: start: 20070417
  2. ZOCOR [Concomitant]
  3. PREMARIN [Concomitant]

REACTIONS (1)
  - VOMITING [None]
